FAERS Safety Report 12510194 (Version 1)
Quarter: 2016Q2

REPORT INFORMATION
  Report Type: Other
  Country: US (occurrence: US)
  Receive Date: 20160629
  Receipt Date: 20160629
  Transmission Date: 20160815
  Serious: Yes (Hospitalization, Other)
  Sender: FDA-Public Use
  Company Number: US-ENDO PHARMACEUTICALS INC-2016-004141

PATIENT
  Age: 37 Year
  Sex: Male

DRUGS (1)
  1. OPANA ER [Suspect]
     Active Substance: OXYMORPHONE HYDROCHLORIDE
     Indication: PRODUCT USED FOR UNKNOWN INDICATION
     Route: 042

REACTIONS (5)
  - Haemolytic anaemia [Recovered/Resolved]
  - Drug abuse [Unknown]
  - Thrombotic microangiopathy [Recovered/Resolved]
  - Renal failure [Recovered/Resolved]
  - Intentional product use issue [Unknown]
